FAERS Safety Report 15706547 (Version 1)
Quarter: 2018Q4

REPORT INFORMATION
  Report Type: Spontaneous
  Country: DK (occurrence: DK)
  Receive Date: 20181210
  Receipt Date: 20181210
  Transmission Date: 20190205
  Serious: Yes (Disabling)
  Sender: FDA-Public Use
  Company Number: DK-SA-2018SA334418

PATIENT
  Age: 37 Year
  Sex: Female

DRUGS (12)
  1. FEXOFENADINE [Concomitant]
     Active Substance: FEXOFENADINE\FEXOFENADINE HYDROCHLORIDE
     Indication: URTICARIA
     Dosage: 480 MG, QD
     Route: 048
     Dates: start: 2015
  2. DUPIXENT [Suspect]
     Active Substance: DUPILUMAB
     Indication: DERMATITIS ATOPIC
     Dosage: 300 MG, QOW
     Route: 058
     Dates: start: 20180823
  3. PINEX [PARACETAMOL] [Concomitant]
     Indication: PAIN
     Dosage: 1000 MG, PRN NOT MORE THAN 04 TIMES/DAY
     Route: 048
     Dates: start: 201510
  4. CLOBEX [CLOBETASOL PROPIONATE] [Concomitant]
     Indication: ECZEMA
     Dosage: THIN LAYER AS NEEDED NOT MORE THAN ONCE/DAY
     Route: 003
     Dates: start: 201702
  5. BETNOVAT [BETAMETHASONE] [Concomitant]
     Indication: ECZEMA
     Dosage: THIN LAYER AS NEEDED
     Route: 003
     Dates: start: 201201
  6. PREDNISOLONE. [Concomitant]
     Active Substance: PREDNISOLONE
     Indication: ECZEMA
     Dosage: 1 DF, PRN
     Route: 048
     Dates: start: 2017
  7. SERTRALIN [SERTRALINE HYDROCHLORIDE] [Concomitant]
     Indication: DEPRESSION
     Dosage: 50 MG, QD
     Route: 048
     Dates: start: 201801
  8. BRICANYL [Concomitant]
     Active Substance: TERBUTALINE SULFATE
     Indication: ASTHMA
     Dosage: 0.5 MG, PRN
     Route: 055
     Dates: start: 201808
  9. NIZORAL [Concomitant]
     Active Substance: KETOCONAZOLE
     Indication: DANDRUFF
     Dosage: THICK LAYER AS NEEDED NOT MORE THAN ONCE/DAY
     Route: 003
     Dates: start: 201811
  10. LAMISIL [Concomitant]
     Active Substance: TERBINAFINE HYDROCHLORIDE
     Indication: TINEA PEDIS
     Dosage: APPLICATION MORNING AND DINNER
     Route: 003
     Dates: start: 201811
  11. DERMOVAT [CLOBETASOL PROPIONATE] [Concomitant]
     Indication: ECZEMA
     Dosage: 1 DF, PRN
     Route: 003
     Dates: start: 201206
  12. OMALIZUMAB. [Concomitant]
     Active Substance: OMALIZUMAB
     Indication: ECZEMA
     Dosage: THIN LAYER AS NEEDED

REACTIONS (1)
  - Headache [Not Recovered/Not Resolved]

NARRATIVE: CASE EVENT DATE: 201809
